FAERS Safety Report 4837088-X (Version None)
Quarter: 2005Q4

REPORT INFORMATION
  Report Type: 
  Country: None (occurrence: None)
  Receive Date: 20051121
  Receipt Date: 20051121
  Transmission Date: 20060501
  Serious: No
  Sender: FDA-Public Use
  Company Number: None

PATIENT
  Age: 63 Year
  Sex: Female
  Weight: 49.8957 kg

DRUGS (1)
  1. PAROXETINE 20 MG TEVA [Suspect]
     Indication: ANXIETY
     Dosage: ONE TABLET DAILY PO
     Route: 048
     Dates: start: 20051117, end: 20051118

REACTIONS (6)
  - CRYING [None]
  - FATIGUE [None]
  - FEELING JITTERY [None]
  - PHARMACEUTICAL PRODUCT COMPLAINT [None]
  - THERAPEUTIC RESPONSE UNEXPECTED WITH DRUG SUBSTITUTION [None]
  - TREMOR [None]
